FAERS Safety Report 6054093-9 (Version None)
Quarter: 2009Q1

REPORT INFORMATION
  Report Type: 
  Country: None (occurrence: None)
  Receive Date: 20090123
  Receipt Date: 20090123
  Transmission Date: 20090719
  Serious: Yes (Life-Threatening, Other)
  Sender: FDA-Public Use
  Company Number: None

PATIENT
  Sex: Female
  Weight: 74.8435 kg

DRUGS (1)
  1. PREMPRO [Suspect]
     Indication: MENOPAUSAL DISORDER
     Dosage: 1 TABLET DAILY PO
     Route: 048

REACTIONS (1)
  - DEMENTIA [None]
